FAERS Safety Report 10079164 (Version 4)
Quarter: 2014Q2

REPORT INFORMATION
  Report Type: Report from Study
  Country: JP (occurrence: JP)
  Receive Date: 20140415
  Receipt Date: 20140515
  Transmission Date: 20141212
  Serious: Yes (Hospitalization)
  Sender: FDA-Public Use
  Company Number: JP-UCBSA-101501

PATIENT
  Age: 40 Year
  Sex: Female
  Weight: 44.3 kg

DRUGS (6)
  1. LEVETIRACETAM [Suspect]
     Indication: EPILEPSY
     Dosage: 1000 MG DAILY
     Route: 048
     Dates: start: 20121228, end: 20131025
  2. ALLEGRA [Concomitant]
     Indication: XERODERMA
     Route: 048
     Dates: start: 20111025
  3. ALLELOCK [Concomitant]
     Indication: XERODERMA
     Route: 048
     Dates: start: 20131130
  4. COSOPT [Concomitant]
     Indication: GLAUCOMA
     Dosage: 1 DROP EACH EYE
     Route: 047
     Dates: start: 20131102
  5. RESCULA [Concomitant]
     Indication: GLAUCOMA
     Dosage: 1 DROP EACH EYE
     Route: 047
     Dates: start: 20131108
  6. NAPAGELN [Concomitant]
     Indication: MUSCULOSKELETAL PAIN
     Dosage: ADEQUATE DOSE
     Route: 062
     Dates: start: 20131202

REACTIONS (6)
  - Status epilepticus [Recovered/Resolved]
  - Alcohol withdrawal syndrome [Recovered/Resolved]
  - Syncope [Recovered/Resolved]
  - Convulsion [Recovered/Resolved]
  - Cystitis [Recovered/Resolved]
  - Postictal state [Recovered/Resolved]
